FAERS Safety Report 9323730 (Version 1)
Quarter: 2013Q2

REPORT INFORMATION
  Report Type: Spontaneous
  Country: DE (occurrence: DE)
  Receive Date: 20130603
  Receipt Date: 20130603
  Transmission Date: 20140414
  Serious: Yes (Other)
  Sender: FDA-Public Use
  Company Number: DE-UCBSA-001793

PATIENT
  Age: 45 Year
  Sex: Female

DRUGS (2)
  1. NEUPRO [Suspect]
     Dosage: CONSECUTIVE FOR SEVERAL DAYS (ALL IN ALL 22MG)
     Route: 062
     Dates: start: 20090301
  2. STALEVO [Concomitant]

REACTIONS (3)
  - Rash [Recovered/Resolved]
  - Overdose [Unknown]
  - Local swelling [Recovered/Resolved]
